FAERS Safety Report 4978792-2 (Version None)
Quarter: 2006Q2

REPORT INFORMATION
  Report Type: 
  Country: None (occurrence: None)
  Receive Date: 20060420
  Receipt Date: 20050829
  Transmission Date: 20061013
  Serious: Yes (Hospitalization)
  Sender: FDA-Public Use
  Company Number: US-MERCK-0508USA04883

PATIENT
  Age: 29 Year
  Sex: Female
  Weight: 111 kg

DRUGS (5)
  1. VIOXX [Suspect]
     Indication: INTERVERTEBRAL DISC PROTRUSION
     Route: 048
     Dates: start: 19990101, end: 20040901
  2. CLARITIN [Concomitant]
     Route: 048
  3. DIFLUCAN [Concomitant]
     Route: 048
  4. SINGULAIR [Concomitant]
     Route: 048
  5. VIOXX [Suspect]
     Indication: INTERVERTEBRAL DISC DEGENERATION
     Route: 048
     Dates: start: 19990101, end: 20040901

REACTIONS (10)
  - ARRHYTHMIA [None]
  - BREAST COSMETIC SURGERY [None]
  - CHEST PAIN [None]
  - GALLBLADDER DISORDER [None]
  - HEART RATE IRREGULAR [None]
  - HYPERTENSION [None]
  - NASAL SEPTUM DEVIATION [None]
  - NECK PAIN [None]
  - ROTATOR CUFF SYNDROME [None]
  - SHOULDER PAIN [None]
